FAERS Safety Report 6375449-0 (Version None)
Quarter: 2009Q3

REPORT INFORMATION
  Report Type: 
  Country: None (occurrence: None)
  Receive Date: 20090924
  Receipt Date: 20090910
  Transmission Date: 20100115
  Serious: Yes (Hospitalization)
  Sender: FDA-Public Use
  Company Number: US-ELI_LILLY_AND_COMPANY-US200909002340

PATIENT
  Sex: Male
  Weight: 79.365 kg

DRUGS (4)
  1. EFFIENT [Suspect]
     Indication: STENT PLACEMENT
     Dosage: UNK, DAILY (1/D)
     Dates: start: 20090901, end: 20090907
  2. BYSTOLIC [Concomitant]
  3. ZOCOR [Concomitant]
  4. ASPIRIN [Concomitant]

REACTIONS (9)
  - BLOOD PRESSURE FLUCTUATION [None]
  - BLOOD PRESSURE INCREASED [None]
  - CHEST DISCOMFORT [None]
  - FATIGUE [None]
  - GINGIVAL BLEEDING [None]
  - HYPOTENSION [None]
  - MEMORY IMPAIRMENT [None]
  - PALLOR [None]
  - SOMNOLENCE [None]
